FAERS Safety Report 10556398 (Version 1)
Quarter: 2014Q4

REPORT INFORMATION
  Report Type: Spontaneous
  Country: FR (occurrence: FR)
  Receive Date: 20141031
  Receipt Date: 20141031
  Transmission Date: 20150529
  Serious: Yes (Other)
  Sender: FDA-Public Use
  Company Number: FR-ROCHE-1483340

PATIENT
  Age: 87 Year
  Sex: Male

DRUGS (12)
  1. IMOVANE [Concomitant]
     Active Substance: ZOPICLONE
  2. AMIODARONE [Concomitant]
     Active Substance: AMIODARONE
  3. ATORVASTATINE [Concomitant]
     Active Substance: ATORVASTATIN
  4. ROCEPHINE [Suspect]
     Active Substance: CEFTRIAXONE SODIUM
     Indication: URINARY TRACT INFECTION
     Route: 042
     Dates: start: 20140727, end: 20140812
  5. IRBESARTAN. [Concomitant]
     Active Substance: IRBESARTAN
  6. REPAGLINIDE. [Concomitant]
     Active Substance: REPAGLINIDE
  7. AMLOR [Concomitant]
     Active Substance: AMLODIPINE BESYLATE
  8. ALFUZOSINE [Concomitant]
     Active Substance: ALFUZOSIN HYDROCHLORIDE
  9. FORLAX [Concomitant]
     Active Substance: POLYETHYLENE GLYCOL 4000
  10. AMLODIPINE [Concomitant]
     Active Substance: AMLODIPINE BESYLATE
  11. LASILIX [Concomitant]
     Active Substance: FUROSEMIDE
  12. KAYEXALATE [Concomitant]
     Active Substance: SODIUM POLYSTYRENE SULFONATE

REACTIONS (3)
  - Neutropenia [Recovered/Resolved]
  - Anaemia [Recovered/Resolved]
  - Lymphopenia [Recovered/Resolved]

NARRATIVE: CASE EVENT DATE: 20140728
